FAERS Safety Report 6965380-1 (Version None)
Quarter: 2010Q3

REPORT INFORMATION
  Report Type: 
  Country: None (occurrence: None)
  Receive Date: 20100903
  Receipt Date: 20100831
  Transmission Date: 20110219
  Serious: Yes (Hospitalization)
  Sender: FDA-Public Use
  Company Number: A0867667A

PATIENT
  Age: 51 Year
  Sex: Female

DRUGS (8)
  1. VALTREX [Suspect]
     Indication: GENITAL HERPES
     Dosage: 1G PER DAY
     Route: 048
     Dates: start: 20020101
  2. ANTIBIOTICS [Concomitant]
  3. VYTORIN [Concomitant]
  4. LISINOPRIL [Concomitant]
  5. IRON SUPPLEMENT [Concomitant]
  6. ESTRADIOL [Concomitant]
  7. PHENERGAN [Concomitant]
  8. MECLIZINE [Concomitant]

REACTIONS (3)
  - CHOLECYSTITIS INFECTIVE [None]
  - SEPSIS [None]
  - VOMITING [None]
